FAERS Safety Report 7732630-3 (Version None)
Quarter: 2011Q3

REPORT INFORMATION
  Report Type: 
  Country: None (occurrence: None)
  Receive Date: 20110906
  Receipt Date: 20110826
  Transmission Date: 20111222
  Serious: Yes (Hospitalization)
  Sender: FDA-Public Use
  Company Number: US-BAYER-2011-023044

PATIENT
  Age: 33 Year
  Sex: Female
  Weight: 65.76 kg

DRUGS (3)
  1. YAZ [Suspect]
     Indication: MENORRHAGIA
     Dosage: UNK
     Dates: start: 20061024, end: 20070701
  2. YAZ [Suspect]
     Indication: UTERINE LEIOMYOMA
  3. MULTI-VITAMINS [Concomitant]
     Dosage: UNK
     Dates: start: 20070728

REACTIONS (13)
  - PULMONARY INFARCTION [None]
  - THROMBOSIS [None]
  - DYSPNOEA [None]
  - CHEST PAIN [None]
  - PLEURISY [None]
  - AFFECT LABILITY [None]
  - WEIGHT DECREASED [None]
  - ABDOMINAL DISCOMFORT [None]
  - EMOTIONAL DISTRESS [None]
  - CRYING [None]
  - PULMONARY EMBOLISM [None]
  - INJURY [None]
  - PAIN [None]
